FAERS Safety Report 18384927 (Version 1)
Quarter: 2020Q4

REPORT INFORMATION
  Report Type: Spontaneous
  Country: US (occurrence: US)
  Receive Date: 20201015
  Receipt Date: 20201015
  Transmission Date: 20210114
  Serious: Yes (Hospitalization, Other)
  Sender: FDA-Public Use
  Company Number: US-CELLTRION INC.-2020US028761

PATIENT

DRUGS (17)
  1. ENTRESTO [Concomitant]
     Active Substance: SACUBITRIL\VALSARTAN
  2. ASPIRIN. [Concomitant]
     Active Substance: ASPIRIN
     Dosage: 325 MG
  3. METFORMIN [Concomitant]
     Active Substance: METFORMIN HYDROCHLORIDE
     Dosage: 500 MG
  4. BIOTIN [Concomitant]
     Active Substance: BIOTIN
  5. RITUXAN [Suspect]
     Active Substance: RITUXIMAB
     Indication: RHEUMATOID ARTHRITIS
     Dosage: UNK
     Dates: start: 2018
  6. TRUXIMA [Suspect]
     Active Substance: RITUXIMAB-ABBS
     Dosage: SECOND TREATMENT, LASTED 6 MONTHS
  7. TRUXIMA [Suspect]
     Active Substance: RITUXIMAB-ABBS
     Indication: RHEUMATOID ARTHRITIS
     Dosage: FIRST TREATMENT AS TWO DOSES (1ST DOSE)
     Dates: start: 2018
  8. TRUXIMA [Suspect]
     Active Substance: RITUXIMAB-ABBS
     Dosage: FIRST TREATMENT AS TWO DOSES (2ND DOSE)
     Dates: start: 2018
  9. COREG [Concomitant]
     Active Substance: CARVEDILOL
  10. TRAMADOL. [Concomitant]
     Active Substance: TRAMADOL
  11. SPIRONOLACTONE. [Concomitant]
     Active Substance: SPIRONOLACTONE
  12. FUROSEMIDE. [Concomitant]
     Active Substance: FUROSEMIDE
  13. TYLENOL [Concomitant]
     Active Substance: ACETAMINOPHEN
  14. DICLOFENAC [Concomitant]
     Active Substance: DICLOFENAC
  15. TRUXIMA [Suspect]
     Active Substance: RITUXIMAB-ABBS
     Dosage: THIRD TREATMENT
     Dates: start: 2020
  16. DIGOXIN. [Concomitant]
     Active Substance: DIGOXIN
     Dosage: (1.25)
  17. IBUPROFEN. [Concomitant]
     Active Substance: IBUPROFEN

REACTIONS (4)
  - Cardiac pacemaker replacement [Unknown]
  - Unevaluable event [Unknown]
  - Diabetes mellitus [Unknown]
  - Drug ineffective [Unknown]
